FAERS Safety Report 19787547 (Version 2)
Quarter: 2021Q3

REPORT INFORMATION
  Report Type: Spontaneous
  Country: US (occurrence: US)
  Receive Date: 20210903
  Receipt Date: 20210929
  Transmission Date: 20211014
  Serious: Yes (Disabling, Other)
  Sender: FDA-Public Use
  Company Number: US-AMGEN-USASP2021133828

PATIENT
  Sex: Female

DRUGS (1)
  1. REPATHA [Suspect]
     Active Substance: EVOLOCUMAB
     Indication: BLOOD CHOLESTEROL ABNORMAL
     Dosage: UNK, Q2WK
     Route: 065
     Dates: start: 2018

REACTIONS (10)
  - Muscle spasms [Unknown]
  - Back pain [Unknown]
  - Pain in extremity [Unknown]
  - Pain [Unknown]
  - Injection site bruising [Unknown]
  - Disability [Unknown]
  - Blood potassium decreased [Unknown]
  - Chest pain [Unknown]
  - Joint lock [Unknown]
  - Injection site pain [Unknown]
